FAERS Safety Report 17534528 (Version 1)
Quarter: 2020Q1

REPORT INFORMATION
  Report Type: Report from Study
  Country: US (occurrence: US)
  Receive Date: 20200312
  Receipt Date: 20200312
  Transmission Date: 20200409
  Serious: Yes (Death)
  Sender: FDA-Public Use
  Company Number: US-ASTRAZENECA-2020SE36002

PATIENT
  Sex: Male

DRUGS (11)
  1. CALCIUM [Concomitant]
     Active Substance: CALCIUM
  2. COREG CR [Concomitant]
     Active Substance: CARVEDILOL PHOSPHATE
  3. ALTACE [Concomitant]
     Active Substance: RAMIPRIL
  4. POTASSIUM CHLORIDE. [Concomitant]
     Active Substance: POTASSIUM CHLORIDE
  5. ZETIA [Concomitant]
     Active Substance: EZETIMIBE
  6. TAGRISSO [Suspect]
     Active Substance: OSIMERTINIB
     Indication: LUNG NEOPLASM MALIGNANT
     Route: 048
     Dates: start: 20180706
  7. LAMICTAL XR [Concomitant]
     Active Substance: LAMOTRIGINE
  8. MULTIVITAMINS [Concomitant]
     Active Substance: VITAMINS
  9. ALDACTONE [Concomitant]
     Active Substance: SPIRONOLACTONE
  10. NORVASC [Concomitant]
     Active Substance: AMLODIPINE BESYLATE
  11. FLOMAX [Concomitant]
     Active Substance: TAMSULOSIN HYDROCHLORIDE

REACTIONS (1)
  - Death [Fatal]
